FAERS Safety Report 4659910-2 (Version None)
Quarter: 2005Q2

REPORT INFORMATION
  Report Type: 
  Country: None (occurrence: None)
  Receive Date: 20050419
  Receipt Date: 20040701
  Transmission Date: 20051028
  Serious: Yes (Other)
  Sender: FDA-Public Use
  Company Number: 04-256-0092

PATIENT
  Age: 31 Year
  Sex: Female

DRUGS (1)
  1. DOXORUBICIN, UNKNOWN STRENGTH, BEN VENUE LABS [Suspect]
     Indication: BREAST CANCER
     Dates: start: 20040629

REACTIONS (2)
  - DYSPNOEA [None]
  - TACHYCARDIA [None]
